FAERS Safety Report 25537892 (Version 2)
Quarter: 2025Q3

REPORT INFORMATION
  Report Type: Spontaneous
  Country: US (occurrence: US)
  Receive Date: 20250710
  Receipt Date: 20250729
  Transmission Date: 20251021
  Serious: Yes (Other)
  Sender: SPECGX
  Company Number: US-SPECGX-T202501170

PATIENT
  Sex: Female

DRUGS (13)
  1. HYDROMORPHONE [Interacting]
     Active Substance: HYDROMORPHONE
     Indication: Pain
     Dosage: 8 MILLIGRAM, Q4H, AFTER EVERY 6 HOURS
     Route: 065
     Dates: start: 202505
  2. HYDROMORPHONE [Interacting]
     Active Substance: HYDROMORPHONE
     Indication: Hereditary motor and sensory neuropathy
  3. HYDROMORPHONE [Interacting]
     Active Substance: HYDROMORPHONE
     Indication: Ehlers-Danlos syndrome
  4. MORPHINE [Suspect]
     Active Substance: MORPHINE
     Indication: Pain
     Route: 065
  5. MORPHINE [Suspect]
     Active Substance: MORPHINE
     Route: 065
     Dates: start: 20250407
  6. OXYCODONE [Suspect]
     Active Substance: OXYCODONE
     Indication: Pain
     Route: 065
     Dates: start: 2010
  7. OXYCODONE [Suspect]
     Active Substance: OXYCODONE
     Route: 065
     Dates: start: 202505
  8. MORPHINE [Suspect]
     Active Substance: MORPHINE
     Indication: Pain
     Dosage: 5 DOSAGE FORM, QD (SUPPOSED TO TAKE 4 PILLS)
     Route: 065
  9. MORPHINE [Suspect]
     Active Substance: MORPHINE
     Route: 065
     Dates: start: 20250518
  10. MORPHINE [Suspect]
     Active Substance: MORPHINE
     Dosage: 15 MILLIGRAM, QID
     Route: 065
  11. PALMIDROL [Interacting]
     Active Substance: PALMIDROL
     Indication: Neuropathy peripheral
     Route: 065
  12. IBUPROFEN [Concomitant]
     Active Substance: IBUPROFEN
     Indication: Arthralgia
     Route: 065
  13. SEROQUEL [Concomitant]
     Active Substance: QUETIAPINE FUMARATE
     Indication: Hereditary motor and sensory neuropathy
     Route: 065

REACTIONS (19)
  - Myasthenia gravis [Unknown]
  - Urinary tract infection [Unknown]
  - Hypoglycaemia [Unknown]
  - Adrenal insufficiency [Unknown]
  - Drug interaction [Unknown]
  - Increased appetite [Unknown]
  - Rhinitis [Unknown]
  - Restless legs syndrome [Unknown]
  - Drug withdrawal syndrome [Unknown]
  - Insomnia [Unknown]
  - Dry mouth [Unknown]
  - Palpitations [Unknown]
  - Feeling abnormal [Unknown]
  - Hyperhidrosis [Unknown]
  - Nausea [Unknown]
  - Drug intolerance [Unknown]
  - Intentional product use issue [Unknown]
  - Product availability issue [Unknown]
  - Drug ineffective [Unknown]

NARRATIVE: CASE EVENT DATE: 20030101
